FAERS Safety Report 8805111 (Version 4)
Quarter: 2013Q1

REPORT INFORMATION
  Report Type: Spontaneous
  Country: US (occurrence: US)
  Receive Date: 20120924
  Receipt Date: 20130108
  Transmission Date: 20140127
  Serious: Yes (Life-Threatening, Hospitalization, Other)
  Sender: FDA-Public Use
  Company Number: US-ELI_LILLY_AND_COMPANY-US201209005769

PATIENT
  Sex: Female
  Weight: 100 kg

DRUGS (17)
  1. HUMALOG LISPRO [Suspect]
     Indication: DIABETES MELLITUS
     Dosage: UNK, PRN
     Dates: start: 201201
  2. HUMALOG LISPRO [Suspect]
     Dosage: UNK, PRN
  3. HUMALOG LISPRO [Suspect]
     Dosage: 6 U, EACH EVENING
  4. HUMALOG LISPRO [Suspect]
     Indication: DIABETES MELLITUS
     Dosage: UNK, PRN
     Dates: end: 201201
  5. HUMULIN REGULAR [Suspect]
     Indication: DIABETES MELLITUS
     Dosage: UNK, UNKNOWN
  6. LEVEMIR [Concomitant]
  7. METFORMIN [Concomitant]
     Dosage: 850 MG, TID
  8. GLIPIZIDE [Concomitant]
     Dosage: 10 MG, BID
  9. LANTUS [Concomitant]
  10. NADOLOL [Concomitant]
     Dosage: 20 MG, BID
     Route: 048
  11. DIOVAN [Concomitant]
     Dosage: 80 MG, QD
     Route: 048
  12. OMEPRAZOLE [Concomitant]
     Dosage: 20 MG, QD
     Route: 048
  13. NPH INSULIN [Concomitant]
     Dosage: 6 U, EACH EVENING
     Route: 058
  14. SPIRONOLACTONE [Concomitant]
     Dosage: 100 MG, QD
     Route: 048
  15. ISOSORBIDE MONONITRATE [Concomitant]
     Dosage: 30 MG, EACH MORNING
     Route: 048
  16. CIPRO [Concomitant]
     Dosage: 500 MG, BID
     Route: 048
  17. LORATADINE [Concomitant]
     Route: 048

REACTIONS (12)
  - Myocardial infarction [Recovering/Resolving]
  - Haemorrhage [Recovering/Resolving]
  - Varices oesophageal [Recovering/Resolving]
  - Hepatic cirrhosis [Recovering/Resolving]
  - Hypotension [Recovering/Resolving]
  - Myocardial infarction [Recovering/Resolving]
  - Myocardial infarction [Recovering/Resolving]
  - Drug dose omission [Unknown]
  - Blood glucose increased [Unknown]
  - Incorrect dose administered [Unknown]
  - Blood glucose decreased [Recovered/Resolved]
  - Accidental exposure to product [Not Recovered/Not Resolved]
